FAERS Safety Report 7434490-7 (Version None)
Quarter: 2011Q2

REPORT INFORMATION
  Report Type: 
  Country: None (occurrence: None)
  Receive Date: 20110425
  Receipt Date: 20101214
  Transmission Date: 20111010
  Serious: Yes (Hospitalization, Other)
  Sender: FDA-Public Use
  Company Number: US-BAYER-201012030NA

PATIENT
  Age: 17 Year
  Sex: Female
  Weight: 91 kg

DRUGS (12)
  1. YASMIN [Suspect]
     Indication: PRODUCT USED FOR UNKNOWN INDICATION
     Dosage: 1 DF (DAILY DOSE), , ORAL
     Route: 048
  2. SINGULAIR [Concomitant]
  3. ASMANEX TWISTHALER [Concomitant]
  4. MOTRIN [Concomitant]
     Indication: PAIN
     Dosage: 400 - 600MG EVERY 6 HOURS AS NEEDED
     Dates: start: 20070203
  5. GLUCOPHAGE [Concomitant]
     Indication: PRODUCT USED FOR UNKNOWN INDICATION
  6. OCELLA [Suspect]
     Indication: PRODUCT USED FOR UNKNOWN INDICATION
     Route: 048
     Dates: start: 20080101, end: 20100101
  7. ZOFRAN [Concomitant]
     Indication: PRODUCT USED FOR UNKNOWN INDICATION
     Dosage: 8 MG (DAILY DOSE), QD,
     Dates: start: 20070903, end: 20070905
  8. GYLOLAX [Concomitant]
  9. CLARITIN [Concomitant]
  10. NASONEX [Concomitant]
  11. YAZ [Suspect]
     Indication: PRODUCT USED FOR UNKNOWN INDICATION
     Route: 048
     Dates: start: 20060101, end: 20070101
  12. METFORMIN [Concomitant]
     Dosage: 500 MG (DAILY DOSE), ,

REACTIONS (8)
  - BILIARY DYSKINESIA [None]
  - ABDOMINAL PAIN UPPER [None]
  - BACK PAIN [None]
  - CONSTIPATION [None]
  - CHOLELITHIASIS [None]
  - EAR PAIN [None]
  - NASAL CONGESTION [None]
  - CHOLECYSTITIS CHRONIC [None]
